FAERS Safety Report 10173665 (Version 1)
Quarter: 2014Q2

REPORT INFORMATION
  Report Type: Spontaneous
  Country: ES (occurrence: ES)
  Receive Date: 20140515
  Receipt Date: 20140515
  Transmission Date: 20141212
  Serious: Yes (Other)
  Sender: FDA-Public Use
  Company Number: ES-009507513-1405ESP005409

PATIENT
  Age: 20 Year
  Sex: Female

DRUGS (1)
  1. IMPLANON NXT [Suspect]
     Dosage: UNK
     Route: 058
     Dates: start: 201211, end: 2014

REACTIONS (3)
  - Surgery [Unknown]
  - Device difficult to use [Unknown]
  - Medical device complication [Unknown]
